FAERS Safety Report 5947654-6 (Version None)
Quarter: 2008Q4

REPORT INFORMATION
  Report Type: 
  Country: None (occurrence: None)
  Receive Date: 20081107
  Receipt Date: 20081023
  Transmission Date: 20090506
  Serious: Yes (Other)
  Sender: FDA-Public Use
  Company Number: 2008S1016758

PATIENT
  Age: 14 Year
  Sex: Female

DRUGS (3)
  1. DOXYCYCLINE HCL [Suspect]
     Indication: ACNE
     Dosage: 100MG;DAILY ; ORAL
     Route: 048
     Dates: start: 20070418, end: 20080707
  2. . [Concomitant]
  3. . [Concomitant]

REACTIONS (1)
  - BLOOD BILIRUBIN INCREASED [None]
